FAERS Safety Report 8425060-2 (Version None)
Quarter: 2012Q2

REPORT INFORMATION
  Report Type: 
  Country: None (occurrence: None)
  Receive Date: 20120605
  Receipt Date: 20120605
  Transmission Date: 20120825
  Serious: No
  Sender: FDA-Public Use
  Company Number: None

PATIENT
  Age: 78 Year
  Sex: Female
  Weight: 99.7913 kg

DRUGS (1)
  1. ESCITALOPRAM [Suspect]
     Dosage: 1 DAY

REACTIONS (6)
  - NAUSEA [None]
  - STRESS [None]
  - DIZZINESS [None]
  - INSOMNIA [None]
  - CHILLS [None]
  - FEELING OF BODY TEMPERATURE CHANGE [None]
